FAERS Safety Report 20636876 (Version 3)
Quarter: 2022Q3

REPORT INFORMATION
  Report Type: Spontaneous
  Country: US (occurrence: US)
  Receive Date: 20220325
  Receipt Date: 20220714
  Transmission Date: 20221027
  Serious: Yes (Other)
  Sender: FDA-Public Use
  Company Number: US-ASTELLAS-2022US003569

PATIENT
  Sex: Male

DRUGS (2)
  1. PADCEV [Suspect]
     Active Substance: ENFORTUMAB VEDOTIN-EJFV
     Indication: Product used for unknown indication
     Dosage: UNK UNK, UNKNOWN FREQ.
     Route: 065
  2. PADCEV [Suspect]
     Active Substance: ENFORTUMAB VEDOTIN-EJFV
     Dosage: UNK, UNKNOWN FREQ. (REDUCED DOSE)
     Route: 065

REACTIONS (4)
  - Neuropathy peripheral [Recovering/Resolving]
  - Hyperglycaemia [Recovering/Resolving]
  - Rash [Recovering/Resolving]
  - Dry skin [Recovering/Resolving]
